FAERS Safety Report 13619639 (Version 1)
Quarter: 2017Q2

REPORT INFORMATION
  Report Type: Spontaneous
  Country: PL (occurrence: PL)
  Receive Date: 20170606
  Receipt Date: 20170606
  Transmission Date: 20170830
  Serious: Yes (Congenital Anomaly)
  Sender: FDA-Public Use
  Company Number: PL-ALLERGAN-1722912US

PATIENT
  Age: 4 Month
  Sex: Female

DRUGS (1)
  1. TAZAROTENE UNK [Suspect]
     Active Substance: TAZAROTENE
     Indication: PSORIASIS
     Dosage: 1 DF, QHS
     Route: 064
     Dates: start: 20170404, end: 20170406

REACTIONS (2)
  - Foetal exposure during pregnancy [Unknown]
  - Psychomotor skills impaired [Not Recovered/Not Resolved]
